FAERS Safety Report 21205804 (Version 1)
Quarter: 2022Q3

REPORT INFORMATION
  Report Type: Other
  Country: ES (occurrence: ES)
  Receive Date: 20220812
  Receipt Date: 20220812
  Transmission Date: 20221027
  Serious: Yes (Other)
  Sender: FDA-Public Use
  Company Number: ES-CELLTRION INC.-2022ES012507

PATIENT

DRUGS (1)
  1. RITUXIMAB [Suspect]
     Active Substance: RITUXIMAB
     Indication: Product used for unknown indication
     Route: 065

REACTIONS (10)
  - Myelopathy [Unknown]
  - Disability [Unknown]
  - Ill-defined disorder [Unknown]
  - Muscle spasticity [Unknown]
  - Skin warm [Unknown]
  - General symptom [Unknown]
  - Asthenia [Unknown]
  - Depression [Unknown]
  - Initial insomnia [Unknown]
  - Pain [Unknown]
